FAERS Safety Report 23290219 (Version 1)
Quarter: 2023Q4

REPORT INFORMATION
  Report Type: Report from Study
  Country: US (occurrence: None)
  Receive Date: 20231213
  Receipt Date: 20231213
  Transmission Date: 20240110
  Serious: Yes (Other)
  Sender: FDA-Public Use
  Company Number: 2023A279849

PATIENT
  Sex: Female

DRUGS (22)
  1. TAGRISSO [Suspect]
     Active Substance: OSIMERTINIB
     Indication: Lung neoplasm malignant
     Route: 048
     Dates: start: 20221212
  2. BUPIVACAINE [Concomitant]
     Active Substance: BUPIVACAINE
  3. KENALOG [Concomitant]
     Active Substance: TRIAMCINOLONE ACETONIDE
  4. VITAMIN B [Concomitant]
     Active Substance: VITAMIN B
  5. CHEWABLE IRON [Concomitant]
  6. VITAMIN D [Concomitant]
     Active Substance: VITAMIN D NOS
  7. PSEUDOEPHEDRINE HYDROCHLORIDE [Concomitant]
     Active Substance: PSEUDOEPHEDRINE HYDROCHLORIDE
  8. OSPHENA [Concomitant]
     Active Substance: OSPEMIFENE
  9. PREGABALIN [Concomitant]
     Active Substance: PREGABALIN
  10. COLLAGEN [Concomitant]
     Active Substance: COLLAGEN
  11. HYALURONIC ACID [Concomitant]
     Active Substance: HYALURONIC ACID
  12. ACEROLA (VITAMIN C) [Concomitant]
  13. BIOTIN [Concomitant]
     Active Substance: BIOTIN
  14. VITAMIN E [Concomitant]
     Active Substance: .ALPHA.-TOCOPHEROL
  15. POTASSIUM [Concomitant]
     Active Substance: POTASSIUM
  16. VITAMIN B12 [Concomitant]
     Active Substance: CYANOCOBALAMIN
  17. EMERGEN-C [Concomitant]
     Active Substance: VITAMINS
  18. HAIRFINITY HEALTHY HAIR VITAMIN [Concomitant]
  19. CLARITIN-D NOS [Concomitant]
     Active Substance: LORATADINE\PSEUDOEPHEDRINE SULFATE
  20. VITAMINS [Concomitant]
     Active Substance: VITAMINS
  21. AMBEREN [Concomitant]
  22. SMARTY PANTS [Concomitant]

REACTIONS (1)
  - Carpal tunnel syndrome [Unknown]
